FAERS Safety Report 7760492-7 (Version None)
Quarter: 2011Q3

REPORT INFORMATION
  Report Type: 
  Country: None (occurrence: None)
  Receive Date: 20110919
  Receipt Date: 20110909
  Transmission Date: 20111222
  Serious: Yes (Hospitalization, Other)
  Sender: FDA-Public Use
  Company Number: US-MILLENNIUM PHARMACEUTICALS, INC.-2011-04166

PATIENT
  Age: 17 Year
  Sex: Male
  Weight: 128 kg

DRUGS (9)
  1. DOXORUBICIN HCL [Suspect]
     Indication: B PRECURSOR TYPE ACUTE LEUKAEMIA
     Dosage: 60 MG/M2, CYCLIC
     Route: 042
     Dates: start: 20110708, end: 20110709
  2. VINCRISTINE [Suspect]
     Indication: B PRECURSOR TYPE ACUTE LEUKAEMIA
     Dosage: 1.5 MG/M2, CYCLIC
     Route: 040
     Dates: start: 20110708, end: 20110801
  3. CYCLOPHOSPHAMIDE [Suspect]
     Indication: B PRECURSOR TYPE ACUTE LEUKAEMIA
     Dosage: 440 MG/M2, CYCLIC
     Route: 042
     Dates: start: 20110819, end: 20110824
  4. CYTARABINE [Suspect]
     Indication: B PRECURSOR TYPE ACUTE LEUKAEMIA
     Dosage: UNK
     Route: 037
     Dates: start: 20110708, end: 20110708
  5. ETOPOSIDE [Suspect]
     Indication: B PRECURSOR TYPE ACUTE LEUKAEMIA
     Dosage: 100 MG/M2, CYCLIC
     Route: 042
     Dates: start: 20110819, end: 20110823
  6. VELCADE [Suspect]
     Indication: B PRECURSOR TYPE ACUTE LEUKAEMIA
     Dosage: 1.3 MG/M2, CYCLIC
     Route: 042
     Dates: start: 20110708, end: 20110827
  7. PREDNISONE [Suspect]
     Indication: B PRECURSOR TYPE ACUTE LEUKAEMIA
     Dosage: 20 MG/M2, CYCLIC
     Route: 048
     Dates: start: 20110708, end: 20110810
  8. PEGASPARGASE [Suspect]
     Indication: B PRECURSOR TYPE ACUTE LEUKAEMIA
     Dosage: UNK
     Dates: start: 20110708, end: 20110801
  9. METHOTREXATE [Suspect]
     Indication: B PRECURSOR TYPE ACUTE LEUKAEMIA
     Dosage: UNK
     Route: 037
     Dates: start: 20110708, end: 20110819

REACTIONS (2)
  - HYPOALBUMINAEMIA [None]
  - HYPERTENSION [None]
